FAERS Safety Report 16633732 (Version 1)
Quarter: 2019Q3

REPORT INFORMATION
  Report Type: Spontaneous
  Country: US (occurrence: US)
  Receive Date: 20190725
  Receipt Date: 20190725
  Transmission Date: 20191004
  Serious: No
  Sender: FDA-Public Use
  Company Number: US-DERMIRA, INC.-US-2019DER000344

PATIENT
  Age: 26 Year
  Sex: Male
  Weight: 74.83 kg

DRUGS (1)
  1. QBREXZA [Suspect]
     Active Substance: GLYCOPYRRONIUM TOSYLATE
     Indication: HYPERHIDROSIS
     Dosage: UNK, QD
     Route: 061
     Dates: start: 2019

REACTIONS (7)
  - Dry mouth [Not Recovered/Not Resolved]
  - Oropharyngeal pain [Recovering/Resolving]
  - Dry eye [Not Recovered/Not Resolved]
  - Speech disorder [Not Recovered/Not Resolved]
  - Intentional product misuse [Unknown]
  - Feeding disorder [Not Recovered/Not Resolved]
  - Dry skin [Not Recovered/Not Resolved]

NARRATIVE: CASE EVENT DATE: 2019
